FAERS Safety Report 4307282-5 (Version None)
Quarter: 2004Q1

REPORT INFORMATION
  Report Type: 
  Country: None (occurrence: None)
  Receive Date: 20040227
  Receipt Date: 20040218
  Transmission Date: 20041129
  Serious: Yes (Other)
  Sender: FDA-Public Use
  Company Number: WAES 0402NLD00016

PATIENT
  Age: 58 Year
  Sex: Female

DRUGS (3)
  1. DICLOFENAC SODIUM [Concomitant]
     Route: 054
  2. VIOXX [Suspect]
     Route: 048
     Dates: start: 20040101, end: 20040101
  3. ZOPICLONE [Concomitant]
     Route: 048

REACTIONS (3)
  - DIZZINESS [None]
  - HALLUCINATION [None]
  - MIGRAINE [None]
